FAERS Safety Report 10479731 (Version 1)
Quarter: 2014Q3

REPORT INFORMATION
  Report Type: Spontaneous
  Country: US (occurrence: None)
  Receive Date: 20140925
  Receipt Date: 20140925
  Transmission Date: 20150326
  Serious: Yes (Hospitalization)
  Sender: FDA-Public Use
  Company Number: VAL_03420_2014

PATIENT
  Sex: Female

DRUGS (10)
  1. NEXIUM [Concomitant]
     Active Substance: ESOMEPRAZOLE MAGNESIUM
  2. MAXIMUM D3 [Concomitant]
     Active Substance: CHOLECALCIFEROL
  3. NUTROPIN [Suspect]
     Active Substance: SOMATROPIN
     Indication: BODY HEIGHT BELOW NORMAL
     Route: 058
     Dates: start: 201111
  4. TYLENOL WITH CODEIN #2 [Concomitant]
  5. GLUCOPHAGE [Concomitant]
     Active Substance: METFORMIN HYDROCHLORIDE
  6. ROCALTROL [Suspect]
     Active Substance: CALCITRIOL
     Indication: PRODUCT USED FOR UNKNOWN INDICATION
  7. NEUTRA-PHOS /00555301/ [Concomitant]
  8. POTASSIUM CITRATE. [Concomitant]
     Active Substance: POTASSIUM CITRATE
  9. PHENERGAN [Concomitant]
     Active Substance: PROMETHAZINE HYDROCHLORIDE
  10. MIRALAX [Concomitant]
     Active Substance: POLYETHYLENE GLYCOL 3350

REACTIONS (14)
  - Nephrolithiasis [None]
  - Hyperparathyroidism [None]
  - Blood sodium increased [None]
  - Blood alkaline phosphatase increased [None]
  - Hypokalaemia [None]
  - Blood glucose increased [None]
  - Polydipsia [None]
  - Constipation [None]
  - Thyroid disorder [None]
  - Blood phosphorus decreased [None]
  - Hypertension [None]
  - Local swelling [None]
  - Bone deformity [None]
  - Pancreatitis [None]
